FAERS Safety Report 6706089-9 (Version None)
Quarter: 2010Q2

REPORT INFORMATION
  Report Type: 
  Country: None (occurrence: None)
  Receive Date: 20100503
  Receipt Date: 20100428
  Transmission Date: 20101027
  Serious: Yes (Hospitalization, Other)
  Sender: FDA-Public Use
  Company Number: US-RB-000583-10

PATIENT
  Age: 62 Year
  Sex: Male

DRUGS (2)
  1. SUBOXONE [Suspect]
     Route: 060
     Dates: start: 20100105
  2. SUBOXONE [Suspect]
     Route: 060
     Dates: start: 20090901, end: 20100104

REACTIONS (3)
  - HYPERHIDROSIS [None]
  - NIGHTMARE [None]
  - SUICIDAL IDEATION [None]
